FAERS Safety Report 8068530-1 (Version None)
Quarter: 2012Q1

REPORT INFORMATION
  Report Type: 
  Country: None (occurrence: None)
  Receive Date: 20120124
  Receipt Date: 20111103
  Transmission Date: 20120608
  Serious: No
  Sender: FDA-Public Use
  Company Number: US-AMGEN-USASP2011057393

PATIENT

DRUGS (7)
  1. CARBIDOPA LEVODOPA TEVA [Concomitant]
  2. LISINOPRIL [Concomitant]
  3. NORTRIPTYLINE HCL [Concomitant]
  4. PROLIA [Suspect]
     Indication: PRODUCT USED FOR UNKNOWN INDICATION
     Dosage: UNK
  5. PRAVASTATIN [Concomitant]
  6. NIACIN [Concomitant]
  7. OMEPRAZOLE [Concomitant]

REACTIONS (6)
  - HEADACHE [None]
  - MUSCLE SPASMS [None]
  - NECK PAIN [None]
  - PAIN IN EXTREMITY [None]
  - PAIN IN JAW [None]
  - MUSCULAR WEAKNESS [None]
